FAERS Safety Report 20350213 (Version 1)
Quarter: 2022Q1

REPORT INFORMATION
  Report Type: Spontaneous
  Country: AU (occurrence: AU)
  Receive Date: 20220119
  Receipt Date: 20220119
  Transmission Date: 20220423
  Serious: No
  Sender: FDA-Public Use
  Company Number: AU-LUPIN PHARMACEUTICALS INC.-2022-00271

PATIENT

DRUGS (1)
  1. CEPHALEXIN [Suspect]
     Active Substance: CEPHALEXIN
     Indication: Oropharyngeal pain
     Dosage: 500 MG, QID
     Route: 065

REACTIONS (3)
  - Foreign body sensation in eyes [Unknown]
  - Lacrimation increased [Unknown]
  - Dry eye [Unknown]
